FAERS Safety Report 5882427-4 (Version None)
Quarter: 2008Q3

REPORT INFORMATION
  Report Type: 
  Country: None (occurrence: None)
  Receive Date: 20080913
  Receipt Date: 20080805
  Transmission Date: 20090109
  Serious: No
  Sender: FDA-Public Use
  Company Number: US-ABBOTT-08P-163-0468837-00

PATIENT
  Sex: Male
  Weight: 47.461 kg

DRUGS (6)
  1. HUMIRA [Suspect]
     Indication: PSORIASIS
     Route: 058
     Dates: start: 20080730, end: 20080730
  2. HUMIRA [Suspect]
     Dates: start: 20080805, end: 20080805
  3. HUMIRA [Suspect]
     Route: 058
     Dates: start: 20080819
  4. EFALIZUMAB [Suspect]
     Indication: DRUG USE FOR UNKNOWN INDICATION
     Dates: end: 20080101
  5. ATORVASTATIN CALCIUM [Concomitant]
     Indication: DRUG USE FOR UNKNOWN INDICATION
  6. CANDESARTAN CILEXETIL [Concomitant]
     Indication: HYPERTENSION

REACTIONS (1)
  - GUTTATE PSORIASIS [None]
